FAERS Safety Report 9013262 (Version 4)
Quarter: 2014Q2

REPORT INFORMATION
  Report Type: Spontaneous
  Country: US (occurrence: US)
  Receive Date: 20130114
  Receipt Date: 20140627
  Transmission Date: 20141212
  Serious: Yes (Hospitalization)
  Sender: FDA-Public Use
  Company Number: US-009507513-1301USA005277

PATIENT
  Sex: Female
  Weight: 89.8 kg

DRUGS (1)
  1. NUVARING [Suspect]
     Indication: MENSTRUAL CYCLE MANAGEMENT
     Dosage: UNK
     Route: 067
     Dates: start: 20090720, end: 200909

REACTIONS (12)
  - Portal vein thrombosis [Unknown]
  - Coagulopathy [Unknown]
  - Influenza [Unknown]
  - Thyroid disorder [Unknown]
  - Hypertension [Unknown]
  - Decreased appetite [Unknown]
  - Off label use [Unknown]
  - Dyspnoea [Unknown]
  - Chest pain [Unknown]
  - Fibrocystic breast disease [Unknown]
  - Costochondritis [Unknown]
  - Weight decreased [Unknown]
